FAERS Safety Report 22324157 (Version 1)
Quarter: 2023Q2

REPORT INFORMATION
  Report Type: Spontaneous
  Country: CN (occurrence: CN)
  Receive Date: 20230516
  Receipt Date: 20230516
  Transmission Date: 20230722
  Serious: Yes (Other)
  Sender: FDA-Public Use
  Company Number: None

PATIENT
  Age: 31 Year
  Sex: Female
  Weight: 55 kg

DRUGS (20)
  1. CYCLOPHOSPHAMIDE [Suspect]
     Active Substance: CYCLOPHOSPHAMIDE
     Indication: Invasive ductal breast carcinoma
     Dosage: 0.8 G, QD, DILUTED WITH 100 ML OF 0.9% SODIUM CHLORIDE INJECTION, SECOND CYCLE OF CHEMOTHERAPY
     Route: 041
     Dates: start: 20230418, end: 20230419
  2. CYCLOPHOSPHAMIDE [Suspect]
     Active Substance: CYCLOPHOSPHAMIDE
     Indication: Chemotherapy
  3. SODIUM CHLORIDE [Suspect]
     Active Substance: SODIUM CHLORIDE
     Indication: Medication dilution
     Dosage: 100 ML, QD, USED TO DILUTE 0.8 G OF CYCLOPHOSPHAMIDE POWDER INJECTION, SECOND CYCLE OF CHEMOTHERAPY
     Route: 041
     Dates: start: 20230418, end: 20230419
  4. SODIUM CHLORIDE [Suspect]
     Active Substance: SODIUM CHLORIDE
     Dosage: 60 ML, QD, USED TO DILUTE 120 MG OF EPIRUBICIN HYDROCHLORIDE POWDER INJECTION, SECOND CYCLE OF CHEMO
     Route: 041
     Dates: start: 20230418, end: 20230419
  5. DEXTROSE [Suspect]
     Active Substance: DEXTROSE\DEXTROSE MONOHYDRATE
     Indication: Medication dilution
     Dosage: 500 ML, QD, USED TO DILUTE 210 MG OF PACLITAXEL LIPOSOME POWDER INJECTION, SECOND CYCLE OF CHEMOTHER
     Route: 041
     Dates: start: 20230418, end: 20230419
  6. PACLITAXEL [Suspect]
     Active Substance: PACLITAXEL
     Indication: Invasive ductal breast carcinoma
     Dosage: 210 MG, QD, DILUTED WITH 500 ML OF 5% GLUCOSE, SECOND CYCLE OF CHEMOTHERAPY
     Route: 041
     Dates: start: 20230418, end: 20230419
  7. PACLITAXEL [Suspect]
     Active Substance: PACLITAXEL
     Indication: Chemotherapy
  8. EPIRUBICIN [Suspect]
     Active Substance: EPIRUBICIN
     Indication: Invasive ductal breast carcinoma
     Dosage: 120 MG, QD, DILUTED WITH 60 ML OF 0.9% SODIUM CHLORIDE INJECTION, SECOND CYCLE OF CHEMOTHERAPY
     Route: 041
     Dates: start: 20230418, end: 20230419
  9. EPIRUBICIN [Suspect]
     Active Substance: EPIRUBICIN
     Indication: Chemotherapy
  10. DEXAMETHASONE SODIUM PHOSPHATE [Concomitant]
     Active Substance: DEXAMETHASONE SODIUM PHOSPHATE
     Indication: Prophylaxis of nausea and vomiting
     Dosage: 5 MG, ONCE, DILUTED WITH 100 ML OF 0.9% SODIUM CHLORIDE
     Route: 041
     Dates: start: 20230418
  11. DEXAMETHASONE SODIUM PHOSPHATE [Concomitant]
     Active Substance: DEXAMETHASONE SODIUM PHOSPHATE
     Indication: Prophylaxis
  12. PALONOSETRON HYDROCHLORIDE [Concomitant]
     Active Substance: PALONOSETRON HYDROCHLORIDE
     Indication: Prophylaxis of nausea and vomiting
     Dosage: 0.25 MG, QOD, DILUTED WITH 100 ML OF 0.9% SODIUM CHLORIDE
     Route: 041
     Dates: start: 20230418
  13. PALONOSETRON HYDROCHLORIDE [Concomitant]
     Active Substance: PALONOSETRON HYDROCHLORIDE
     Indication: Prophylaxis
  14. TROPISETRON HYDROCHLORIDE [Concomitant]
     Active Substance: TROPISETRON HYDROCHLORIDE
     Indication: Prophylaxis of nausea and vomiting
     Dosage: 5 MG, QD, DILUTED WITH 100 ML OF 0.9% SODIUM CHLORIDE
     Route: 041
     Dates: start: 20230418
  15. TROPISETRON HYDROCHLORIDE [Concomitant]
     Active Substance: TROPISETRON HYDROCHLORIDE
     Indication: Prophylaxis
  16. MAGNESIUM ISOGLYCYRRHIZINATE [Concomitant]
     Active Substance: MAGNESIUM ISOGLYCYRRHIZINATE
     Indication: Prophylaxis
     Dosage: 200 MG, DILUTED WITH 250 ML OF 5% GLUCOSE
     Route: 065
     Dates: start: 20230418
  17. SODIUM CHLORIDE [Concomitant]
     Active Substance: SODIUM CHLORIDE
     Indication: Medication dilution
     Dosage: 100 ML, QD, USED TO DILUTE 5 MG OF DEXAMETHASONE SODIUM PHOSPHATE
     Route: 041
     Dates: start: 20230418
  18. SODIUM CHLORIDE [Concomitant]
     Active Substance: SODIUM CHLORIDE
     Dosage: 100 ML, QOD, USED TO DILUTE 0.25 MG OF PALONOSETRON HYDROCHLORIDE
     Route: 041
     Dates: start: 20230418
  19. SODIUM CHLORIDE [Concomitant]
     Active Substance: SODIUM CHLORIDE
     Dosage: 100 ML, QD, USED TO DILUTE 5 MG OF TROPISETRON HYDROCHLORIDE
     Route: 041
     Dates: start: 20230418
  20. DEXTROSE [Concomitant]
     Active Substance: DEXTROSE\DEXTROSE MONOHYDRATE
     Indication: Medication dilution
     Dosage: 250 ML, USED TO DILUTE 200 MG OF MAGNESIUM ISOGLYCYRRHIZINATE INJECTION
     Route: 065
     Dates: start: 20230418

REACTIONS (3)
  - Liver injury [Unknown]
  - Nausea [Unknown]
  - Vomiting [Unknown]

NARRATIVE: CASE EVENT DATE: 20230419
